FAERS Safety Report 7996122 (Version 3)
Quarter: 2014Q1

REPORT INFORMATION
  Report Type: Report from Study
  Country: DE (occurrence: DE)
  Receive Date: 20110617
  Receipt Date: 20140325
  Transmission Date: 20141002
  Serious: Yes (Life-Threatening, Hospitalization)
  Sender: FDA-Public Use
  Company Number: DE-ROCHE-783320

PATIENT
  Age: 72 Year
  Sex: Male
  Weight: 73 kg

DRUGS (4)
  1. TRASTUZUMAB [Suspect]
     Indication: METASTATIC GASTRIC CANCER
     Dosage: LAST GIVEN APPLICATION WAS ON 10 MAY 2011.
     Route: 042
  2. CISPLATIN [Suspect]
     Indication: METASTATIC GASTRIC CANCER
     Route: 042
  3. 5-FU [Suspect]
     Indication: METASTATIC GASTRIC CANCER
     Route: 042
  4. FOLINIC ACID [Concomitant]
     Indication: METASTATIC GASTRIC CANCER
     Route: 042

REACTIONS (2)
  - Sepsis [Recovered/Resolved]
  - Device related infection [Recovered/Resolved]
